FAERS Safety Report 4963966-7 (Version None)
Quarter: 2006Q2

REPORT INFORMATION
  Report Type: 
  Country: None (occurrence: None)
  Receive Date: 20060405
  Receipt Date: 20050117
  Transmission Date: 20061013
  Serious: Yes (Hospitalization, Disabling)
  Sender: FDA-Public Use
  Company Number: US-MERCK-0501USA02656

PATIENT
  Age: 32 Year
  Sex: Female
  Weight: 130 kg

DRUGS (3)
  1. VIOXX [Suspect]
     Indication: PAIN
     Route: 048
     Dates: start: 20011001, end: 20020101
  2. VIOXX [Suspect]
     Indication: OSTEOARTHRITIS
     Route: 048
     Dates: start: 20011001, end: 20020101
  3. MOTRIN [Concomitant]
     Route: 065

REACTIONS (12)
  - ARRHYTHMIA [None]
  - ARTHRALGIA [None]
  - ATRIAL FIBRILLATION [None]
  - BLOOD CHOLESTEROL INCREASED [None]
  - CARDIAC DISORDER [None]
  - CHEST PAIN [None]
  - DIABETES MELLITUS [None]
  - DIABETIC NEUROPATHY [None]
  - HEART INJURY [None]
  - OBESITY [None]
  - OSTEOARTHRITIS [None]
  - OVERDOSE [None]
